FAERS Safety Report 15145614 (Version 1)
Quarter: 2018Q3

REPORT INFORMATION
  Report Type: Report from Study
  Country: PL (occurrence: PL)
  Receive Date: 20180713
  Receipt Date: 20180713
  Transmission Date: 20181010
  Serious: Yes (Other)
  Sender: FDA-Public Use
  Company Number: PL-TEVA-2018-PL-922762

PATIENT

DRUGS (2)
  1. MORPHINE [Interacting]
     Active Substance: MORPHINE
     Route: 065
  2. DICLOFENAC [Suspect]
     Active Substance: DICLOFENAC
     Route: 065

REACTIONS (3)
  - Respiratory disorder [Unknown]
  - Respiratory depression [Unknown]
  - Drug interaction [Unknown]
